FAERS Safety Report 9601969 (Version 1)
Quarter: 2013Q4

REPORT INFORMATION
  Report Type: Spontaneous
  Country: US (occurrence: US)
  Receive Date: 20131007
  Receipt Date: 20131007
  Transmission Date: 20140711
  Serious: Yes (Other)
  Sender: FDA-Public Use
  Company Number: PHEH2013US020666

PATIENT
  Sex: Female

DRUGS (1)
  1. EXTAVIA [Suspect]
     Indication: MULTIPLE SCLEROSIS
     Dosage: UNK UKN, UNK

REACTIONS (11)
  - Myocardial infarction [Unknown]
  - Osteoporosis [Unknown]
  - Bone disorder [Unknown]
  - Hypovitaminosis [Unknown]
  - Fall [Unknown]
  - Finger deformity [Unknown]
  - Nausea [Unknown]
  - Depressed mood [Unknown]
  - Vomiting [Unknown]
  - Dizziness [Unknown]
  - Malaise [Unknown]
